FAERS Safety Report 7471493-0 (Version None)
Quarter: 2011Q2

REPORT INFORMATION
  Report Type: 
  Country: None (occurrence: None)
  Receive Date: 20110511
  Receipt Date: 20110502
  Transmission Date: 20111010
  Serious: No
  Sender: FDA-Public Use
  Company Number: US-BIOGENIDEC-2011BI016476

PATIENT
  Age: 54 Year
  Sex: Male

DRUGS (3)
  1. XANAX [Concomitant]
     Indication: POOR QUALITY SLEEP
  2. AVONEX [Suspect]
     Indication: MULTIPLE SCLEROSIS
     Route: 030
     Dates: start: 20110422
  3. ELAVIL [Concomitant]
     Indication: POOR QUALITY SLEEP

REACTIONS (3)
  - FLUSHING [None]
  - INSOMNIA [None]
  - INFLUENZA LIKE ILLNESS [None]
